FAERS Safety Report 15357617 (Version 2)
Quarter: 2018Q3

REPORT INFORMATION
  Report Type: Spontaneous
  Country: GB (occurrence: GB)
  Receive Date: 20180906
  Receipt Date: 20180928
  Transmission Date: 20181010
  Serious: Yes (Hospitalization, Other)
  Sender: FDA-Public Use
  Company Number: GB-SA-2018SA237714

PATIENT
  Age: 26 Year
  Sex: Female

DRUGS (1)
  1. LEMTRADA [Suspect]
     Active Substance: ALEMTUZUMAB
     Dosage: UNK
     Route: 041
     Dates: start: 20180529

REACTIONS (5)
  - Gingival bleeding [Unknown]
  - Contusion [Unknown]
  - Platelet count abnormal [Unknown]
  - Immune thrombocytopenic purpura [Unknown]
  - Petechiae [Unknown]

NARRATIVE: CASE EVENT DATE: 20180808
